FAERS Safety Report 13903067 (Version 1)
Quarter: 2017Q3

REPORT INFORMATION
  Report Type: Spontaneous
  Country: US (occurrence: US)
  Receive Date: 20170824
  Receipt Date: 20170824
  Transmission Date: 20171127
  Serious: No
  Sender: FDA-Public Use
  Company Number: US-B.I. PHARMACEUTICALS,INC./RIDGEFIELD-2017-BI-046011

PATIENT
  Age: 58 Year
  Sex: Female

DRUGS (22)
  1. BUSPIRONE [Concomitant]
     Active Substance: BUSPIRONE HYDROCHLORIDE
     Indication: ANXIETY
     Dosage: ONE TABLET BID;  FORM STRENGTH: 15MG; FORMULATION: TABLET
     Route: 048
     Dates: start: 2013
  2. PROMETHAZINE [Concomitant]
     Active Substance: PROMETHAZINE\PROMETHAZINE HYDROCHLORIDE
     Indication: PRODUCT USED FOR UNKNOWN INDICATION
     Dosage: ONE TABLET EVERY 6 HOURS;  FORM STRENGTH: 25NMG; FORMULATION: TABLET
     Route: 048
  3. PHENERGAN [Concomitant]
     Active Substance: PROMETHAZINE HYDROCHLORIDE
     Indication: NAUSEA
     Dosage: ONE TABLERT EVEY FOUR HOURS AS NEEDED;  FORM STRENGTH: 25MG; FORMULATION: CAPLET
     Route: 048
     Dates: start: 201612
  4. LOMOTIL [Concomitant]
     Active Substance: ATROPINE SULFATE\DIPHENOXYLATE HYDROCHLORIDE
     Indication: DIARRHOEA
     Dosage: ONE CAPLET EVERY FOUR HOURS AS NEEDED;  FORM STRENGTH: 2.5MG; FORMULATION: CAPLET
     Route: 048
     Dates: start: 201612
  5. MYRBETRIQ [Concomitant]
     Active Substance: MIRABEGRON
     Indication: HYPERTONIC BLADDER
     Dosage: ONE TABLET DAILY;  FORM STRENGTH: 25MG; FORMULATION: TABLET
     Route: 048
  6. PHENAZOPYRIDINE. [Concomitant]
     Active Substance: PHENAZOPYRIDINE
     Indication: BLADDER PAIN
     Dosage: ONE TABLET TID;  FORM STRENGTH: 200MG; FORMULATION: TABLET
     Route: 048
  7. DICYCLOMINE HYDROCHLORIDE. [Concomitant]
     Active Substance: DICYCLOMINE HYDROCHLORIDE
     Indication: IRRITABLE BOWEL SYNDROME
     Dosage: ONE TABLET TID; PRN;  FORM STRENGTH: 20MG; FORMULATION: TABLET
     Route: 048
  8. GABAPENTIN. [Concomitant]
     Active Substance: GABAPENTIN
     Indication: NEUROPATHY PERIPHERAL
     Dosage: TWO CAPLETS TID;  FORM STRENGTH: 600MG; FORMULATION: CAPLET
     Route: 048
  9. SINGULAIR [Concomitant]
     Active Substance: MONTELUKAST SODIUM
     Indication: PRODUCT USED FOR UNKNOWN INDICATION
     Dosage: ONE CAPLET DAILY;  FORM STRENGTH: 10MG; FORMULATION: CAPLET
     Route: 048
  10. NYSTATIN. [Concomitant]
     Active Substance: NYSTATIN
     Indication: ORAL FUNGAL INFECTION
     Dosage: SWISH AND SPIT; QID;  FORM STRENGTH: 5ML; FORMULATION: ORAL SUSPENSION
     Route: 048
  11. ABILIFY [Concomitant]
     Active Substance: ARIPIPRAZOLE
     Indication: ANXIETY
     Dosage: ONE TABLET DAILY;  FORM STRENGTH: 2MG; FORMULATION: TABLET
     Route: 048
     Dates: start: 20170811
  12. ABILIFY [Concomitant]
     Active Substance: ARIPIPRAZOLE
     Indication: BIPOLAR DISORDER
  13. LEXAPRO [Concomitant]
     Active Substance: ESCITALOPRAM OXALATE
     Indication: ANXIETY
     Dosage: ONE CAPLET DAILY;  FORM STRENGTH: 10 MG; FORMULATION: CAPLET
     Route: 048
     Dates: start: 20170811
  14. METFORMIN [Concomitant]
     Active Substance: METFORMIN HYDROCHLORIDE
     Indication: DIABETES MELLITUS
     Dosage: ONE CAPLET BID;  FORM STRENGTH: 1000MG; FORMULATION: CAPLET
     Route: 048
  15. LASIX [Concomitant]
     Active Substance: FUROSEMIDE
     Indication: DIURETIC THERAPY
     Dosage: ONE TABLET DAILY;  FORM STRENGTH: 40MG; FORMULATION: TABLET
     Route: 048
  16. STIOLTO RESPIMAT [Suspect]
     Active Substance: OLODATEROL HYDROCHLORIDE\TIOTROPIUM BROMIDE MONOHYDRATE
     Indication: ASTHMA
     Dosage: 2 INHALATIONS ONCE DAILY;  FORM STRENGTH: 2.5 MCG; FORMULATION: INHALATION SPRAY? ADMINISTRATION COR
     Route: 055
     Dates: start: 201706
  17. ZOFRAN [Concomitant]
     Active Substance: ONDANSETRON HYDROCHLORIDE
     Indication: NAUSEA
     Dosage: ONE CAPLET EVERY FOUR HOURS AS NEEDED.;  FORM STRENGTH: 4MG; FORMULATION: CAPLET
     Route: 048
     Dates: start: 2013
  18. ELMIRON [Concomitant]
     Active Substance: PENTOSAN POLYSULFATE SODIUM
     Indication: CYSTITIS INTERSTITIAL
     Dosage: ONE CAPSULE TID;  FORM STRENGTH: 100MG; FORMULATION: CAPSULE
     Route: 048
  19. PERCOCET [Concomitant]
     Active Substance: ACETAMINOPHEN\OXYCODONE HYDROCHLORIDE
     Indication: PAIN
     Dosage: ONE CAPLET EVEY 6 HOURS AS NEEDED;  FORM STRENGTH: 10MG; FORMULATION: CAPLET
     Route: 048
  20. OMEPRAZOLE. [Concomitant]
     Active Substance: OMEPRAZOLE
     Indication: PRODUCT USED FOR UNKNOWN INDICATION
     Dosage: ONE CAPSULE DAILY;  FORM STRENGTH: 40MG; FORMULATION: CAPSULE
     Route: 048
  21. DIPHENOXYLATE-ATROPINE [Concomitant]
     Indication: DIARRHOEA
     Route: 065
     Dates: start: 201701
  22. NORVASC [Concomitant]
     Active Substance: AMLODIPINE BESYLATE
     Indication: HYPERTENSION
     Dosage: ONE CAPLET DAILY;  FORM STRENGTH: 5MG; FORMULATION: CAPLET
     Route: 048

REACTIONS (3)
  - Off label use [Unknown]
  - Oral fungal infection [Unknown]
  - Road traffic accident [Unknown]

NARRATIVE: CASE EVENT DATE: 201707
